FAERS Safety Report 13421660 (Version 3)
Quarter: 2017Q2

REPORT INFORMATION
  Report Type: Report from Study
  Country: US (occurrence: US)
  Receive Date: 20170410
  Receipt Date: 20170417
  Transmission Date: 20170830
  Serious: Yes (Other)
  Sender: FDA-Public Use
  Company Number: US-ROCHE-1917411

PATIENT
  Sex: Female

DRUGS (20)
  1. PRILOSEC [Concomitant]
     Active Substance: OMEPRAZOLE MAGNESIUM
     Dosage: 40MG DR CAPSULE 90 CAPSULE (1 CAPSULE DAILY)
     Route: 065
  2. CETIRIZINE [Concomitant]
     Active Substance: CETIRIZINE HYDROCHLORIDE
     Dosage: 180 TABLET EVERY EVENING
     Route: 048
     Dates: start: 20170307
  3. XOLAIR [Suspect]
     Active Substance: OMALIZUMAB
     Indication: IDIOPATHIC URTICARIA
     Route: 058
  4. TRAMADOL. [Concomitant]
     Active Substance: TRAMADOL
     Route: 048
  5. VITAMIN C [Concomitant]
     Active Substance: ASCORBIC ACID
     Route: 048
  6. ZYRTEC [Concomitant]
     Active Substance: CETIRIZINE HYDROCHLORIDE
     Route: 048
     Dates: start: 20150110
  7. GASTROCROM [Concomitant]
     Active Substance: CROMOLYN SODIUM
     Route: 065
     Dates: start: 20151007, end: 20170224
  8. ASA [Concomitant]
     Active Substance: ASPIRIN
  9. REGLAN [Concomitant]
     Active Substance: METOCLOPRAMIDE HYDROCHLORIDE
     Route: 048
  10. ZANTAC [Concomitant]
     Active Substance: RANITIDINE HYDROCHLORIDE
  11. RANITIDINE. [Concomitant]
     Active Substance: RANITIDINE
     Dosage: 90 CAPSULE
     Route: 048
     Dates: start: 20170307
  12. IBUPROFEN. [Concomitant]
     Active Substance: IBUPROFEN
  13. ATARAX [Concomitant]
     Active Substance: HYDROXYZINE HYDROCHLORIDE
     Dosage: AT BEDTIME AS NEEDED 90 TABLET
     Route: 048
     Dates: start: 20170307
  14. VITAMIN D3 [Concomitant]
     Active Substance: CHOLECALCIFEROL
     Dosage: 3000 UNIT
     Route: 048
  15. DULERA [Concomitant]
     Active Substance: FORMOTEROL FUMARATE DIHYDRATE\MOMETASONE FUROATE
     Route: 065
  16. ZOFRAN [Concomitant]
     Active Substance: ONDANSETRON HYDROCHLORIDE
     Dosage: 4 MG
     Route: 065
     Dates: start: 20150103
  17. RANITIDINE. [Concomitant]
     Active Substance: RANITIDINE
     Dosage: 90 CAPSULE
     Route: 048
     Dates: start: 20150110
  18. SINGULAIR [Concomitant]
     Active Substance: MONTELUKAST SODIUM
     Route: 048
     Dates: start: 20170307
  19. TOPAMAX [Concomitant]
     Active Substance: TOPIRAMATE
     Route: 048
  20. NAPROXEN. [Concomitant]
     Active Substance: NAPROXEN
     Route: 048

REACTIONS (5)
  - Anaphylactic reaction [Unknown]
  - Dizziness [Unknown]
  - Hypoaesthesia [Unknown]
  - Syncope [Unknown]
  - Dyspnoea [Unknown]
